FAERS Safety Report 11415728 (Version 1)
Quarter: 2015Q3

REPORT INFORMATION
  Report Type: Spontaneous
  Country: GB (occurrence: GB)
  Receive Date: 20150825
  Receipt Date: 20150825
  Transmission Date: 20151125
  Serious: Yes (Hospitalization)
  Sender: FDA-Public Use
  Company Number: PHFR2015GB004920

PATIENT
  Age: 74 Year
  Sex: Male

DRUGS (3)
  1. ZOMETA [Suspect]
     Active Substance: ZOLEDRONIC ACID
     Indication: PLASMA CELL MYELOMA
     Dosage: UNK UNK, QMO
     Route: 042
  2. ZOMETA [Suspect]
     Active Substance: ZOLEDRONIC ACID
     Dosage: 3.5 MG, UNK
     Route: 042
     Dates: start: 20150623
  3. ZOMETA [Suspect]
     Active Substance: ZOLEDRONIC ACID
     Dosage: 4 MG, UNK
     Route: 042

REACTIONS (5)
  - Spinal column injury [Unknown]
  - Weight decreased [Unknown]
  - Creatinine renal clearance decreased [Unknown]
  - Fall [Unknown]
  - Tenderness [Unknown]

NARRATIVE: CASE EVENT DATE: 20150803
